FAERS Safety Report 15917846 (Version 1)
Quarter: 2019Q1

REPORT INFORMATION
  Report Type: Spontaneous
  Country: US (occurrence: US)
  Receive Date: 20190205
  Receipt Date: 20190205
  Transmission Date: 20190417
  Serious: No
  Sender: FDA-Public Use
  Company Number: US-PFIZER INC-2019043455

PATIENT
  Age: 77 Year
  Sex: Female
  Weight: 66.22 kg

DRUGS (1)
  1. XELJANZ XR [Suspect]
     Active Substance: TOFACITINIB CITRATE
     Indication: ARTHRITIS
     Dosage: 11 MG, 1X/DAY
     Route: 048
     Dates: start: 20181226, end: 20190111

REACTIONS (5)
  - Oropharyngeal pain [Unknown]
  - Sleep disorder [Unknown]
  - Sinus pain [Recovering/Resolving]
  - Pain in extremity [Unknown]
  - Arthralgia [Unknown]
